FAERS Safety Report 4596495-3 (Version None)
Quarter: 2005Q1

REPORT INFORMATION
  Report Type: 
  Country: None (occurrence: None)
  Receive Date: 20050228
  Receipt Date: 20050211
  Transmission Date: 20050727
  Serious: Yes (Life-Threatening)
  Sender: FDA-Public Use
  Company Number: 10259

PATIENT
  Age: 25 Year
  Sex: Female

DRUGS (1)
  1. ATRACURIUM [Suspect]
     Indication: LIFE SUPPORT
     Dosage: 20 MG FREQ IV
     Route: 042
     Dates: start: 20050126, end: 20050126

REACTIONS (3)
  - BRONCHOSPASM [None]
  - HYPOVENTILATION [None]
  - OXYGEN SATURATION DECREASED [None]
